FAERS Safety Report 10187532 (Version 1)
Quarter: 2014Q2

REPORT INFORMATION
  Report Type: Spontaneous
  Country: US (occurrence: None)
  Receive Date: 20140520
  Receipt Date: 20140520
  Transmission Date: 20141212
  Serious: Yes (Other)
  Sender: FDA-Public Use
  Company Number: 2014P1004152

PATIENT
  Age: 42 Year
  Sex: Male

DRUGS (1)
  1. INFUMORPH [Suspect]
     Indication: SPINAL PAIN
     Route: 037

REACTIONS (2)
  - Pain [None]
  - Medical device complication [None]
